FAERS Safety Report 17322671 (Version 3)
Quarter: 2023Q1

REPORT INFORMATION
  Report Type: Report from Study
  Country: US (occurrence: US)
  Receive Date: 20200127
  Receipt Date: 20230204
  Transmission Date: 20230417
  Serious: No
  Sender: FDA-Public Use
  Company Number: US-BIOGEN-2019BI00696696

PATIENT
  Age: 66 Year
  Sex: Male

DRUGS (8)
  1. DALFAMPRIDINE [Suspect]
     Active Substance: DALFAMPRIDINE
     Indication: Product used for unknown indication
     Dosage: 10 MILLIGRAM
     Route: 065
  2. TECFIDERA [Suspect]
     Active Substance: DIMETHYL FUMARATE
     Indication: Multiple sclerosis
     Dosage: 240 MILLIGRAM, BID, TAKE 1 CAPSULE BYMOUTH TWICE A DAY
     Route: 048
     Dates: start: 20130823, end: 20130909
  3. TECFIDERA [Suspect]
     Active Substance: DIMETHYL FUMARATE
     Dosage: 240 MILLIGRAM, BID
     Route: 048
  4. TECFIDERA [Suspect]
     Active Substance: DIMETHYL FUMARATE
     Dosage: UNK
     Route: 048
     Dates: start: 20190202
  5. TECFIDERA [Suspect]
     Active Substance: DIMETHYL FUMARATE
     Dosage: 240 MILLIGRAM, BID
     Route: 048
  6. COENZYME Q10 [Concomitant]
     Active Substance: DIETARY SUPPLEMENT\UBIDECARENONE
     Indication: Product used for unknown indication
     Dosage: UNK
     Route: 065
  7. ALKA SELTZER HEARTBURN [Concomitant]
     Indication: Product used for unknown indication
     Dosage: UNK
     Route: 065
  8. VITAMIN B12 [Concomitant]
     Active Substance: CYANOCOBALAMIN
     Indication: Product used for unknown indication
     Dosage: UNK
     Route: 065

REACTIONS (9)
  - Decreased appetite [Not Recovered/Not Resolved]
  - Weight increased [Not Recovered/Not Resolved]
  - Bronchitis [Recovered/Resolved]
  - Flushing [Not Recovered/Not Resolved]
  - Gastric disorder [Not Recovered/Not Resolved]
  - Product dose omission issue [Unknown]
  - Headache [Recovered/Resolved with Sequelae]
  - Abdominal pain [Recovered/Resolved]
  - Diarrhoea [Recovered/Resolved]

NARRATIVE: CASE EVENT DATE: 20191001
